FAERS Safety Report 6199883-7 (Version None)
Quarter: 2009Q2

REPORT INFORMATION
  Report Type: 
  Country: None (occurrence: None)
  Receive Date: 20090522
  Receipt Date: 20090521
  Transmission Date: 20091009
  Serious: Yes (Other)
  Sender: FDA-Public Use
  Company Number: US-WYE-H04907808

PATIENT
  Sex: Female

DRUGS (4)
  1. PREMPRO [Suspect]
     Dosage: UNKNOWN
     Route: 048
     Dates: start: 19970601
  2. PREMARIN [Suspect]
  3. PROMETRIUM [Suspect]
  4. PROVERA [Suspect]

REACTIONS (1)
  - BREAST CANCER RECURRENT [None]
